FAERS Safety Report 7785649-0 (Version None)
Quarter: 2011Q3

REPORT INFORMATION
  Report Type: 
  Country: None (occurrence: None)
  Receive Date: 20110929
  Receipt Date: 20110929
  Transmission Date: 20111222
  Serious: Yes (Life-Threatening, Hospitalization)
  Sender: FDA-Public Use
  Company Number: None

PATIENT
  Sex: Male
  Weight: 68 kg

DRUGS (1)
  1. CIPROFLOXACIN [Suspect]
     Indication: GASTROINTESTINAL INFECTION
     Route: 048
     Dates: start: 20110807, end: 20110811

REACTIONS (13)
  - ABDOMINAL PAIN UPPER [None]
  - HEPATITIS [None]
  - AMMONIA INCREASED [None]
  - JAUNDICE [None]
  - INTERNATIONAL NORMALISED RATIO INCREASED [None]
  - HEPATOMEGALY [None]
  - URINE COPPER INCREASED [None]
  - LIVER DISORDER [None]
  - DECREASED APPETITE [None]
  - WEIGHT DECREASED [None]
  - LIVER INJURY [None]
  - HEPATO-LENTICULAR DEGENERATION [None]
  - SERUM FERRITIN INCREASED [None]
